FAERS Safety Report 20842422 (Version 2)
Quarter: 2023Q2

REPORT INFORMATION
  Report Type: Spontaneous
  Country: US (occurrence: US)
  Receive Date: 20220518
  Receipt Date: 20230614
  Transmission Date: 20230722
  Serious: No
  Sender: FDA-Public Use
  Company Number: ENDG22-01864

PATIENT
  Age: 6 Year
  Sex: Male
  Weight: 17 kg

DRUGS (9)
  1. BOSENTAN [Suspect]
     Active Substance: BOSENTAN
     Indication: Pulmonary arterial hypertension
     Dosage: UNK UNKNOWN, BID (ONE TABLET DISSOLVED IN 10 ML OF WATER, DRAW UPTO 5 ML GIVEN VIA G-TUBE)
     Dates: start: 202202
  2. SAMSCA [Concomitant]
     Active Substance: TOLVAPTAN
     Indication: Product used for unknown indication
     Dosage: UNK UNKNOWN, OD (ONE TABLET CRUSHED AND MIXED IN 4 ML OF WATER AND THEN GIVEN IN 3 ML VIAL G-TUBE)
  3. TRACLEER                           /01587701/ [Concomitant]
     Indication: Product used for unknown indication
     Dosage: UNK UNKNOWN, BID (ONE HALF TABLET BY MOUTH TWICE DAILY FOR 4 WEEKS)
     Route: 048
  4. TRACLEER                           /01587701/ [Concomitant]
     Dosage: 1 DF, BID (1 TABLET TWICE DAILY)
     Route: 048
  5. SILDENAFIL [Concomitant]
     Active Substance: SILDENAFIL
     Indication: Pulmonary hypertension
     Dosage: 20 MG, TID
  6. ENALAPRIL [Concomitant]
     Active Substance: ENALAPRIL
     Indication: Cardiac failure congestive
     Dosage: 2 MG, BID
  7. FUROSEMIDE [Concomitant]
     Active Substance: FUROSEMIDE
     Indication: Cardiac failure congestive
     Dosage: 20 MG, TID
  8. BUDESONIDE [Concomitant]
     Active Substance: BUDESONIDE
     Indication: Chronic respiratory disease
     Dosage: 3 MG, BID
  9. ASPIRIN [Concomitant]
     Active Substance: ASPIRIN
     Indication: Fontan procedure
     Dosage: 81 MG, DAILY

REACTIONS (2)
  - Liver function test increased [Recovered/Resolved]
  - Off label use [Unknown]

NARRATIVE: CASE EVENT DATE: 20220201
